FAERS Safety Report 7641641-8 (Version None)
Quarter: 2011Q3

REPORT INFORMATION
  Report Type: 
  Country: None (occurrence: None)
  Receive Date: 20110728
  Receipt Date: 20110708
  Transmission Date: 20111222
  Serious: Yes (Hospitalization)
  Sender: FDA-Public Use
  Company Number: US-GLAXOSMITHKLINE-A0869127A

PATIENT
  Age: 58 Year
  Sex: Male
  Weight: 121.4 kg

DRUGS (9)
  1. ACIPHEX [Concomitant]
  2. LOTENSIN [Concomitant]
  3. AVANDIA [Suspect]
     Indication: DIABETES MELLITUS
     Dosage: 4MG TWICE PER DAY
     Route: 048
     Dates: start: 20000419, end: 20060822
  4. GLUCOTROL XL [Concomitant]
  5. TRICOR [Concomitant]
  6. ZESTRIL [Concomitant]
  7. VIOXX [Concomitant]
     Dates: start: 20000316
  8. LIPITOR [Concomitant]
  9. GLUCOPHAGE [Concomitant]

REACTIONS (6)
  - ANXIETY [None]
  - DEPRESSION [None]
  - CARDIAC FAILURE CONGESTIVE [None]
  - CORONARY ARTERY DISEASE [None]
  - MYOCARDIAL INFARCTION [None]
  - ATRIAL FIBRILLATION [None]
